FAERS Safety Report 9337837 (Version 1)
Quarter: 2013Q2

REPORT INFORMATION
  Report Type: Report from Study
  Country: US (occurrence: US)
  Receive Date: 20130607
  Receipt Date: 20130607
  Transmission Date: 20140414
  Serious: Yes (Hospitalization, Other)
  Sender: FDA-Public Use
  Company Number: US-US-EMD SERONO, INC.-7215390

PATIENT
  Age: 65 Year
  Sex: Female

DRUGS (7)
  1. REBIF [Suspect]
     Indication: RELAPSING-REMITTING MULTIPLE SCLEROSIS
     Route: 058
     Dates: start: 20070816
  2. AMBIEN [Concomitant]
     Indication: INSOMNIA
     Route: 048
     Dates: end: 20130513
  3. HYDROCODONE W/IBUPROFEN [Concomitant]
     Indication: PAIN
     Route: 048
  4. PREMARIN                           /00073001/ [Concomitant]
     Indication: MENOPAUSE
     Route: 048
  5. FOSAMAX [Concomitant]
     Indication: OSTEOPOROSIS
     Route: 048
  6. DITROPAN                           /00538901/ [Concomitant]
     Indication: INCONTINENCE
     Route: 048
  7. PROVENTIL                          /00139501/ [Concomitant]
     Indication: DYSPNOEA

REACTIONS (9)
  - Parotitis [Recovered/Resolved]
  - Intervertebral disc protrusion [Unknown]
  - Osteitis [Not Recovered/Not Resolved]
  - White blood cell count increased [Unknown]
  - Injection site discolouration [Not Recovered/Not Resolved]
  - Injection site atrophy [Not Recovered/Not Resolved]
  - Multiple sclerosis relapse [Unknown]
  - Influenza like illness [Recovering/Resolving]
  - Depression [Not Recovered/Not Resolved]
